FAERS Safety Report 9352113 (Version 1)
Quarter: 2013Q2

REPORT INFORMATION
  Report Type: Spontaneous
  Country: DE (occurrence: DE)
  Receive Date: 20130617
  Receipt Date: 20130617
  Transmission Date: 20140414
  Serious: Yes (Hospitalization)
  Sender: FDA-Public Use
  Company Number: DE-TEVA-410203GER

PATIENT
  Age: 16 Year
  Sex: Female
  Weight: 56 kg

DRUGS (1)
  1. METOCLOPRAMIDE [Suspect]
     Indication: ABDOMINAL DISCOMFORT
     Dates: start: 20130308, end: 20130308

REACTIONS (3)
  - Extrapyramidal disorder [Unknown]
  - Ophthalmoplegia [Unknown]
  - Torticollis [Unknown]
